FAERS Safety Report 19807412 (Version 1)
Quarter: 2021Q3

REPORT INFORMATION
  Report Type: Spontaneous
  Country: US (occurrence: US)
  Receive Date: 20210908
  Receipt Date: 20210908
  Transmission Date: 20211014
  Serious: Yes (Hospitalization)
  Sender: FDA-Public Use
  Company Number: None

PATIENT
  Age: 82 Year
  Sex: Male

DRUGS (1)
  1. CASIRIVIMAB?IMDEVIMAB [Suspect]
     Active Substance: CASIRIVIMAB\IMDEVIMAB
     Indication: COVID-19
     Dosage: ?          OTHER FREQUENCY:ONCE AS 4 SQ INJ;?
     Route: 058
     Dates: start: 20210813, end: 20210813

REACTIONS (3)
  - Vital functions abnormal [None]
  - Hypotension [None]
  - Oxygen saturation decreased [None]

NARRATIVE: CASE EVENT DATE: 20210813
